FAERS Safety Report 4440564-5 (Version None)
Quarter: 2004Q3

REPORT INFORMATION
  Report Type: 
  Country: None (occurrence: None)
  Receive Date: 20040903
  Receipt Date: 20040607
  Transmission Date: 20050211
  Serious: Yes (Other)
  Sender: FDA-Public Use
  Company Number: FR-ROCHE-370568

PATIENT
  Age: 73 Year
  Sex: Female
  Weight: 57 kg

DRUGS (8)
  1. ROCEPHIN [Suspect]
     Indication: SINUSITIS
     Route: 042
     Dates: start: 20040521, end: 20040603
  2. ROCEPHIN [Suspect]
     Route: 058
     Dates: start: 20040604, end: 20040607
  3. LANTUS [Concomitant]
     Route: 058
     Dates: start: 20040526
  4. FRAXIPARINE [Concomitant]
     Indication: THROMBOSIS PROPHYLAXIS
     Route: 058
     Dates: start: 20040513, end: 20040607
  5. HUMALOG [Concomitant]
     Dosage: DOSING REGIMEN REPORTED AS 10-16-12
     Route: 058
     Dates: start: 20040601
  6. LOXEN [Concomitant]
     Indication: HYPERTENSION
     Dosage: DOSINF REGIMEN REPORTED AS 50X2
     Route: 048
  7. FLAGYL [Concomitant]
     Indication: SINUSITIS
     Route: 048
     Dates: start: 20040523, end: 20040610
  8. TRIFLUCAN [Concomitant]
     Route: 048
     Dates: start: 20040513, end: 20040606

REACTIONS (3)
  - INJECTION SITE ERYTHEMA [None]
  - INJECTION SITE NECROSIS [None]
  - SKIN LESION [None]
